FAERS Safety Report 11501198 (Version 1)
Quarter: 2015Q3

REPORT INFORMATION
  Report Type: Spontaneous
  Country: US (occurrence: None)
  Receive Date: 20150911
  Receipt Date: 20150911
  Transmission Date: 20151125
  Serious: Yes (Life-Threatening)
  Sender: FDA-Public Use
  Company Number: None

PATIENT
  Age: 62 Year
  Sex: Female
  Weight: 95.26 kg

DRUGS (9)
  1. PROTONIX [Concomitant]
     Active Substance: PANTOPRAZOLE SODIUM
  2. PROPRANOLOL [Concomitant]
     Active Substance: PROPRANOLOL\PROPRANOLOL HYDROCHLORIDE
  3. ALBUTERAL [Concomitant]
     Active Substance: ALBUTEROL
  4. APIDRA [Concomitant]
     Active Substance: INSULIN GLULISINE
  5. ITRACONAZOLE 100MG MYLAN [Suspect]
     Active Substance: ITRACONAZOLE
     Indication: FUNGAL INFECTION
     Dosage: 2  TWICE DAILY TAKEN BY MOUTH
     Route: 048
     Dates: start: 20150721, end: 20150803
  6. ITRACONAZOLE 100MG MYLAN [Suspect]
     Active Substance: ITRACONAZOLE
     Indication: SINUSITIS
     Dosage: 2  TWICE DAILY TAKEN BY MOUTH
     Route: 048
     Dates: start: 20150721, end: 20150803
  7. METFORMIN [Concomitant]
     Active Substance: METFORMIN HYDROCHLORIDE
  8. VERAPAMIL ER [Suspect]
     Active Substance: VERAPAMIL HYDROCHLORIDE
     Indication: HYPERTENSION
     Dosage: 1 PILL  ONCE DAILY TAKEN BY MOUTH
     Route: 048
     Dates: start: 20140721, end: 20150803
  9. LANTUS [Concomitant]
     Active Substance: INSULIN GLARGINE

REACTIONS (2)
  - Drug interaction [None]
  - Toxicity to various agents [None]

NARRATIVE: CASE EVENT DATE: 20150804
